FAERS Safety Report 4835967-0 (Version None)
Quarter: 2005Q4

REPORT INFORMATION
  Report Type: 
  Country: None (occurrence: None)
  Receive Date: 20051123
  Receipt Date: 20051013
  Transmission Date: 20060501
  Serious: Yes (Other)
  Sender: FDA-Public Use
  Company Number: 2005UW15420

PATIENT
  Age: 8695 Day
  Sex: Female

DRUGS (4)
  1. SEROQUEL [Suspect]
     Indication: MAJOR DEPRESSION
     Route: 048
     Dates: start: 20050712
  2. SEROQUEL [Suspect]
     Dosage: 25 TO 100 MG DAILY
     Route: 048
  3. PROZAC [Concomitant]
     Indication: MAJOR DEPRESSION
     Dosage: 20-40 MG
     Route: 048
     Dates: start: 20050621
  4. KLONOPIN [Concomitant]
     Indication: MAJOR DEPRESSION
     Dosage: 0.5 - 2 MG
     Route: 048
     Dates: start: 20050712

REACTIONS (1)
  - PITUITARY TUMOUR BENIGN [None]
